FAERS Safety Report 4614006-0 (Version None)
Quarter: 2005Q1

REPORT INFORMATION
  Report Type: 
  Country: None (occurrence: None)
  Receive Date: 20050316
  Receipt Date: 20050302
  Transmission Date: 20050727
  Serious: Yes (Life-Threatening, Hospitalization)
  Sender: FDA-Public Use
  Company Number: FR_050305959

PATIENT
  Age: 73 Year
  Sex: Male

DRUGS (2)
  1. GEMZAR [Suspect]
     Indication: BLADDER CANCER
     Dosage: 1000 MG/M2/3 OTHER
     Route: 050
     Dates: start: 20041001, end: 20050101
  2. CISPLATIN [Concomitant]

REACTIONS (3)
  - ACUTE RESPIRATORY DISTRESS SYNDROME [None]
  - CARDIAC ARREST [None]
  - PNEUMONITIS [None]
